FAERS Safety Report 6737891-5 (Version None)
Quarter: 2010Q2

REPORT INFORMATION
  Report Type: 
  Country: None (occurrence: None)
  Receive Date: 20100521
  Receipt Date: 20100521
  Transmission Date: 20101027
  Serious: Yes (Hospitalization)
  Sender: FDA-Public Use
  Company Number: None

PATIENT
  Age: 41 Year
  Sex: Male
  Weight: 103.42 kg

DRUGS (2)
  1. PROMAZINE HYDROCHLORIDE [Suspect]
     Indication: NAUSEA
     Dosage: 25 MG QID PO
     Route: 048
     Dates: start: 20100322, end: 20100401
  2. PROMAZINE HYDROCHLORIDE [Suspect]
     Indication: VOMITING
     Dosage: 25 MG QID PO
     Route: 048
     Dates: start: 20100322, end: 20100401

REACTIONS (5)
  - CHOREA [None]
  - CONFUSIONAL STATE [None]
  - MYALGIA [None]
  - MYOCLONUS [None]
  - PARKINSONISM [None]
